FAERS Safety Report 15751702 (Version 3)
Quarter: 2019Q1

REPORT INFORMATION
  Report Type: Spontaneous
  Country: BR (occurrence: BR)
  Receive Date: 20181221
  Receipt Date: 20190222
  Transmission Date: 20190417
  Serious: Yes (Hospitalization, Other)
  Sender: FDA-Public Use
  Company Number: BR-ASTRAZENECA-2018SF64341

PATIENT
  Age: 15484 Day
  Sex: Female
  Weight: 63.1 kg

DRUGS (5)
  1. IBRANCE [Suspect]
     Active Substance: PALBOCICLIB
     Dosage: 125 MG, EVERY 21 DAYS THEN REST FOR 7 DAYS
     Route: 048
     Dates: start: 20180924, end: 20181006
  2. MONONESSA [Concomitant]
     Active Substance: ETHINYL ESTRADIOL\NORGESTIMATE
  3. FASLODEX [Suspect]
     Active Substance: FULVESTRANT
     Indication: INTRADUCTAL PROLIFERATIVE BREAST LESION
     Dosage: 500MG EVERY 14 DAYS IN THE FIRST 3 DOSES THEN EVERY 28 DAYS
     Route: 030
     Dates: start: 20180924, end: 20181006
  4. FASLODEX [Suspect]
     Active Substance: FULVESTRANT
     Indication: INTRADUCTAL PROLIFERATIVE BREAST LESION
     Route: 030
     Dates: start: 20181126
  5. VITAMIN D3 [Concomitant]
     Active Substance: CHOLECALCIFEROL

REACTIONS (5)
  - Nausea [Recovered/Resolved]
  - Pyrexia [Recovered/Resolved]
  - Fatigue [Recovered/Resolved]
  - Neutropenia [Recovered/Resolved]
  - Leukopenia [Recovered/Resolved]

NARRATIVE: CASE EVENT DATE: 20181006
